FAERS Safety Report 25287626 (Version 4)
Quarter: 2025Q3

REPORT INFORMATION
  Report Type: Spontaneous
  Country: MX (occurrence: MX)
  Receive Date: 20250509
  Receipt Date: 20250710
  Transmission Date: 20251021
  Serious: No
  Sender: PFIZER
  Company Number: MX-PFIZER INC-202500095443

PATIENT

DRUGS (1)
  1. ENBREL [Suspect]
     Active Substance: ETANERCEPT

REACTIONS (2)
  - Device mechanical issue [Unknown]
  - Condition aggravated [Unknown]
